FAERS Safety Report 22242166 (Version 2)
Quarter: 2023Q2

REPORT INFORMATION
  Report Type: Spontaneous
  Country: US (occurrence: None)
  Receive Date: 20230422
  Receipt Date: 20230616
  Transmission Date: 20230721
  Serious: No
  Sender: FDA-Public Use
  Company Number: 2023A091868

PATIENT

DRUGS (2)
  1. SYMBICORT [Suspect]
     Active Substance: BUDESONIDE\FORMOTEROL FUMARATE DIHYDRATE
     Dosage: 160/4.5 INHALER, TWO TIMES A DAY
     Route: 055
  2. SYMBICORT [Suspect]
     Active Substance: BUDESONIDE\FORMOTEROL FUMARATE DIHYDRATE
     Dosage: 160/4.5 INHALERS; 2 PUFFS ONCE A DAY
     Route: 055
     Dates: start: 2023

REACTIONS (5)
  - Dyspnoea [Unknown]
  - Drug ineffective [Unknown]
  - Device use issue [Unknown]
  - Underdose [Unknown]
  - Wrong technique in device usage process [Unknown]
